FAERS Safety Report 6094375-8 (Version None)
Quarter: 2009Q1

REPORT INFORMATION
  Report Type: 
  Country: None (occurrence: None)
  Receive Date: 20090226
  Receipt Date: 20090217
  Transmission Date: 20090719
  Serious: Yes (Other)
  Sender: FDA-Public Use
  Company Number: US-BAXTER-2009BH002945

PATIENT
  Age: 44 Year
  Sex: Male
  Weight: 88 kg

DRUGS (10)
  1. NAFCILLIN SODIUM [Suspect]
     Indication: STAPHYLOCOCCAL ABSCESS
     Route: 042
     Dates: start: 20090204, end: 20090216
  2. NAFCILLIN SODIUM [Suspect]
     Route: 042
     Dates: start: 20090204, end: 20090216
  3. CYMBALTA [Concomitant]
     Indication: DEPRESSION
     Route: 048
  4. LOVENOX [Concomitant]
     Indication: DRUG USE FOR UNKNOWN INDICATION
     Route: 058
  5. CITRONEL [Concomitant]
     Indication: DRUG USE FOR UNKNOWN INDICATION
     Route: 048
  6. NEURONTIN [Concomitant]
     Indication: NEURALGIA
     Route: 048
  7. COLACE [Concomitant]
     Indication: CONSTIPATION
     Route: 048
  8. INVANZ [Concomitant]
     Indication: INFECTION
     Route: 042
  9. IRON [Concomitant]
     Indication: SUPPLEMENTATION THERAPY
     Route: 048
  10. DITROPAN [Concomitant]
     Indication: BLADDER SPASM
     Route: 048

REACTIONS (2)
  - AUTONOMIC DYSREFLEXIA [None]
  - OFF LABEL USE [None]
